FAERS Safety Report 4869039-6 (Version None)
Quarter: 2005Q4

REPORT INFORMATION
  Report Type: 
  Country: None (occurrence: None)
  Receive Date: 20051223
  Receipt Date: 20051209
  Transmission Date: 20060501
  Serious: Yes (Other)
  Sender: FDA-Public Use
  Company Number: 2005EU002758

PATIENT
  Age: 75 Year
  Sex: Male

DRUGS (2)
  1. PROTOPIC [Suspect]
     Indication: PRURITUS
     Dosage: 0.1%, BID, TOPICAL
     Route: 061
     Dates: start: 20030912, end: 20031112
  2. TALNITIAN [Concomitant]

REACTIONS (1)
  - BOWEN'S DISEASE [None]
